FAERS Safety Report 9306687 (Version 1)
Quarter: 2013Q2

REPORT INFORMATION
  Report Type: Spontaneous
  Country: US (occurrence: US)
  Receive Date: 20130523
  Receipt Date: 20130523
  Transmission Date: 20140414
  Serious: Yes (Other)
  Sender: FDA-Public Use
  Company Number: US-PERRIGO-13US005242

PATIENT
  Age: 53 Year
  Sex: Female
  Weight: 53.52 kg

DRUGS (3)
  1. LOPERAMIDE HYDROCHLORIDE 0.1333 MG/ML 645 [Suspect]
     Indication: DIARRHOEA
     Dosage: 45 ML, QD
     Route: 048
     Dates: start: 20130511, end: 20130513
  2. ANTIHYPERTENSIVES [Concomitant]
     Indication: HYPERTENSION
     Dosage: UNK
     Route: 065
  3. OXYGEN [Concomitant]
     Indication: PRODUCT USED FOR UNKNOWN INDICATION
     Dosage: UNK
     Route: 055

REACTIONS (4)
  - Dehydration [Recovered/Resolved]
  - Incorrect drug administration duration [Recovered/Resolved]
  - Drug ineffective [Unknown]
  - Gastroenteritis viral [None]
